FAERS Safety Report 17268025 (Version 4)
Quarter: 2020Q4

REPORT INFORMATION
  Report Type: Spontaneous
  Country: JP (occurrence: JP)
  Receive Date: 20200114
  Receipt Date: 20201202
  Transmission Date: 20210113
  Serious: Yes (Death, Hospitalization)
  Sender: FDA-Public Use
  Company Number: JP-BAYER-2020-004546

PATIENT
  Age: 61 Year
  Sex: Male
  Weight: 88.2 kg

DRUGS (6)
  1. LIVACT [AMINO ACIDS NOS] [Concomitant]
     Dosage: DAILY DOSE12.45 G
     Route: 048
     Dates: start: 20190717, end: 20200108
  2. RABEPRAZOLE [Concomitant]
     Active Substance: RABEPRAZOLE
     Dosage: 10 MG, QD
     Route: 048
     Dates: start: 20190729, end: 20200108
  3. MIYA-BM [Concomitant]
     Active Substance: CLOSTRIDIUM BUTYRICUM SPORES STRAIN M-55
     Dosage: DAILY DOSE 3 DF
     Route: 048
     Dates: start: 20191028, end: 20200108
  4. COPTIS SPP.;GLYCYRRHIZA SPP.;PANAX GINSENG;PINELLIA TERNATA;SCUTEL [Concomitant]
     Indication: DIARRHOEA
     Dosage: DAILY DOSE 7.5 G
     Route: 048
     Dates: start: 20191210, end: 20200108
  5. KATIV [MENADIOL DIACETATE] [Concomitant]
     Dosage: DAILY DOSE 15 MG
     Route: 048
     Dates: start: 20190821, end: 20200108
  6. STIVARGA [Suspect]
     Active Substance: REGORAFENIB
     Indication: HEPATOCELLULAR CARCINOMA
     Dosage: 120MG DAILY DOSE, 3 WEEKS ADMINISTERED AND 1 WEEK OFF
     Route: 048
     Dates: start: 20191112, end: 20200101

REACTIONS (7)
  - Interstitial lung disease [Fatal]
  - Dyspnoea [Fatal]
  - Oedema peripheral [Unknown]
  - Off label use [None]
  - Decreased appetite [Unknown]
  - Diarrhoea [Unknown]
  - Respiratory failure [Fatal]

NARRATIVE: CASE EVENT DATE: 20191112
